FAERS Safety Report 23963451 (Version 1)
Quarter: 2024Q2

REPORT INFORMATION
  Report Type: Spontaneous
  Country: IT (occurrence: IT)
  Receive Date: 20240611
  Receipt Date: 20240611
  Transmission Date: 20240715
  Serious: Yes (Other)
  Sender: FDA-Public Use
  Company Number: None

PATIENT
  Age: 76 Year
  Sex: Female
  Weight: 60 kg

DRUGS (2)
  1. FILGRASTIM [Suspect]
     Active Substance: FILGRASTIM
     Indication: Neutrophil count decreased
     Dosage: 1 VIAL WEEKLY
     Route: 058
     Dates: start: 20240508, end: 20240522
  2. BRUKINSA [Concomitant]
     Active Substance: ZANUBRUTINIB
     Indication: Nodal marginal zone B-cell lymphoma
     Dosage: 80 MG, 2X/DAY
     Route: 048
     Dates: start: 20240205, end: 20240529

REACTIONS (3)
  - Tongue oedema [Recovered/Resolved]
  - Dysphagia [Recovered/Resolved]
  - Off label use [Unknown]

NARRATIVE: CASE EVENT DATE: 20240522
